FAERS Safety Report 5918539-6 (Version None)
Quarter: 2008Q4

REPORT INFORMATION
  Report Type: 
  Country: None (occurrence: None)
  Receive Date: 20081010
  Receipt Date: 20080924
  Transmission Date: 20090506
  Serious: Yes (Other)
  Sender: FDA-Public Use
  Company Number: B0540068A

PATIENT

DRUGS (1)
  1. LAMICTAL [Suspect]
     Dosage: 200 MG TWICE PER DAY

REACTIONS (4)
  - ABDOMINAL PAIN [None]
  - DYSPEPSIA [None]
  - FALL [None]
  - HYPERHIDROSIS [None]
